FAERS Safety Report 5443190-4 (Version None)
Quarter: 2007Q3

REPORT INFORMATION
  Report Type: 
  Country: None (occurrence: None)
  Receive Date: 20070828
  Receipt Date: 20070813
  Transmission Date: 20080115
  Serious: Yes (Life-Threatening)
  Sender: FDA-Public Use
  Company Number: 200710488BFR

PATIENT
  Age: 24 Month
  Sex: Male

DRUGS (4)
  1. HELIXATE [Suspect]
     Indication: FACTOR VIII DEFICIENCY
     Dosage: 750 IU, OW, INTRAVENOUS; 71 IU/KG, TOTAL DAILY, INTRAVE; 71 IU/KG, TOTAL DAILY, INTRAVE; 71 IU/KG, T
     Route: 042
     Dates: start: 20061023
  2. HELIXATE [Suspect]
     Indication: FACTOR VIII DEFICIENCY
     Dosage: 750 IU, OW, INTRAVENOUS; 71 IU/KG, TOTAL DAILY, INTRAVE; 71 IU/KG, TOTAL DAILY, INTRAVE; 71 IU/KG, T
     Route: 042
     Dates: start: 20070711
  3. HELIXATE [Suspect]
     Indication: FACTOR VIII DEFICIENCY
     Dosage: 750 IU, OW, INTRAVENOUS; 71 IU/KG, TOTAL DAILY, INTRAVE; 71 IU/KG, TOTAL DAILY, INTRAVE; 71 IU/KG, T
     Route: 042
     Dates: start: 20070713
  4. HELIXATE [Suspect]
     Indication: FACTOR VIII DEFICIENCY
     Dosage: 750 IU, OW, INTRAVENOUS; 71 IU/KG, TOTAL DAILY, INTRAVE; 71 IU/KG, TOTAL DAILY, INTRAVE; 71 IU/KG, T
     Route: 042
     Dates: start: 20070713

REACTIONS (1)
  - FACTOR VIII INHIBITION [None]
